FAERS Safety Report 9005589 (Version 2)
Quarter: 2013Q1

REPORT INFORMATION
  Report Type: Report from Study
  Country: TW (occurrence: TW)
  Receive Date: 20130109
  Receipt Date: 20130115
  Transmission Date: 20140127
  Serious: Yes (Death, Hospitalization, Disabling)
  Sender: FDA-Public Use
  Company Number: TW-INCYTE CORPORATION-2012IN002623

PATIENT
  Age: 65 Year
  Sex: Male
  Weight: 62 kg

DRUGS (4)
  1. INC424 [Suspect]
     Indication: MYELOFIBROSIS
     Dosage: 5 MG, BID
     Route: 048
     Dates: start: 20120816, end: 20121210
  2. PREDNISOLONE [Concomitant]
     Dosage: UNK
     Dates: start: 20121017, end: 20121213
  3. PROPRANOLOL [Concomitant]
     Dosage: UNK
     Dates: start: 20091215, end: 20121213
  4. SUCRALFATE [Concomitant]
     Dosage: UNK
     Dates: start: 20121206, end: 20121213

REACTIONS (6)
  - Sepsis [Fatal]
  - Hepatorenal syndrome [Fatal]
  - Diarrhoea [Fatal]
  - Hepatic failure [Fatal]
  - Blood bilirubin increased [Not Recovered/Not Resolved]
  - Renal failure acute [Not Recovered/Not Resolved]
